FAERS Safety Report 9163776 (Version 2)
Quarter: 2013Q1

REPORT INFORMATION
  Report Type: Spontaneous
  Country: US (occurrence: US)
  Receive Date: 20130314
  Receipt Date: 20130321
  Transmission Date: 20140127
  Serious: Yes (Hospitalization, Other)
  Sender: FDA-Public Use
  Company Number: GB-PFIZER INC-2013076250

PATIENT
  Age: 33 Month
  Sex: Male

DRUGS (1)
  1. PHENYTOIN [Suspect]
     Dosage: 18 TABLETS, ? GR, ONCE
     Route: 048
     Dates: start: 19560710

REACTIONS (5)
  - Toxicity to various agents [Recovered/Resolved]
  - Ataxia [Recovering/Resolving]
  - Confusional state [Recovered/Resolved]
  - Mydriasis [Recovered/Resolved]
  - Nystagmus [Recovered/Resolved]
